FAERS Safety Report 21600785 (Version 2)
Quarter: 2022Q4

REPORT INFORMATION
  Report Type: Report from Study
  Country: US (occurrence: US)
  Receive Date: 20221116
  Receipt Date: 20221123
  Transmission Date: 20230112
  Serious: Yes (Hospitalization)
  Sender: FDA-Public Use
  Company Number: US-ABBVIE-22K-163-4505211-00

PATIENT
  Age: 64 Year
  Weight: 91 kg

DRUGS (3)
  1. HUMIRA [Suspect]
     Active Substance: ADALIMUMAB
     Indication: Colitis ulcerative
     Dosage: CITRATE FREE
     Route: 058
     Dates: start: 20220429, end: 20220801
  2. HUMIRA [Suspect]
     Active Substance: ADALIMUMAB
  3. RINVOQ [Suspect]
     Active Substance: UPADACITINIB
     Indication: Product used for unknown indication
     Route: 048
     Dates: start: 2022

REACTIONS (5)
  - Hospitalisation [Unknown]
  - Colitis ulcerative [Recovered/Resolved]
  - Pain [Unknown]
  - Drug ineffective [Unknown]
  - Weight increased [Unknown]

NARRATIVE: CASE EVENT DATE: 20220429
